FAERS Safety Report 8911446 (Version 2)
Quarter: 2014Q2

REPORT INFORMATION
  Report Type: Spontaneous
  Country: US (occurrence: US)
  Receive Date: 20121116
  Receipt Date: 20140423
  Transmission Date: 20141212
  Serious: Yes (Hospitalization)
  Sender: FDA-Public Use
  Company Number: US-BAYER-2012-117788

PATIENT
  Age: 41 Year
  Sex: Female

DRUGS (19)
  1. YAZ [Suspect]
     Indication: ACNE
  2. YASMIN [Suspect]
     Indication: ENDOMETRIOSIS
  3. YASMIN [Suspect]
     Indication: CONTRACEPTION
  4. YASMIN [Suspect]
     Indication: PELVIC PAIN
  5. YASMIN [Suspect]
     Indication: ACNE
  6. OCELLA [Suspect]
     Indication: ACNE
  7. LEXAPRO [Concomitant]
     Dosage: 10 MG, DAILY
     Route: 048
  8. ZOFRAN [Concomitant]
     Dosage: 4 MG, UNK
     Route: 048
     Dates: start: 20120308
  9. KETOROLAC [Concomitant]
     Dosage: 60 MG, UNK
     Route: 030
     Dates: start: 20120308
  10. DILAUDID [Concomitant]
  11. ULTRAM [Concomitant]
     Dosage: 50 MG, 1 6-8 HOURS
     Route: 048
     Dates: start: 20120308
  12. IBUPROFEN [Concomitant]
     Dosage: 600 MG, TID
     Route: 048
     Dates: start: 20120308
  13. TORADOL [Concomitant]
  14. LORAZEPAM [Concomitant]
     Dosage: 1 MG, Q4HR PRN
  15. NORCO [Concomitant]
  16. NASONEX [Concomitant]
     Dosage: 50 MCG/24HR, UNK
  17. LORTAB [Concomitant]
     Dosage: UNK; 6-8 [HOURS] PRN
     Route: 048
     Dates: start: 20120308
  18. TRAMADOL [Concomitant]
     Dosage: 50 MG, UNK
  19. HYDROCODONE/ACETAMINOPHEN [Concomitant]
     Dosage: 5-500 MG;UNK

REACTIONS (4)
  - Pulmonary embolism [Recovered/Resolved]
  - Injury [None]
  - Pain [Recovered/Resolved]
  - Pain [None]
